FAERS Safety Report 18130191 (Version 5)
Quarter: 2020Q4

REPORT INFORMATION
  Report Type: Spontaneous
  Country: US (occurrence: US)
  Receive Date: 20200810
  Receipt Date: 20201104
  Transmission Date: 20210113
  Serious: Yes (Hospitalization, Other)
  Sender: FDA-Public Use
  Company Number: US-INTRA-CELLULAR THERAPIES, INC.-2020ICT00064

PATIENT
  Sex: Male

DRUGS (3)
  1. CAPLYTA [Suspect]
     Active Substance: LUMATEPERONE
     Dosage: 24 MG, 1X/DAY AT EVERY EVENING MEAL
     Route: 048
     Dates: start: 20200730, end: 2020
  2. INVEGA [Suspect]
     Active Substance: PALIPERIDONE
     Dosage: UNK
     Dates: end: 2020
  3. CAPLYTA [Suspect]
     Active Substance: LUMATEPERONE
     Indication: SCHIZOPHRENIA
     Dosage: 42 MG, 1X/DAY
     Route: 048
     Dates: start: 202006, end: 202007

REACTIONS (3)
  - Social anxiety disorder [Unknown]
  - Extrapyramidal disorder [Recovered/Resolved]
  - Refusal of treatment by relative [Not Recovered/Not Resolved]

NARRATIVE: CASE EVENT DATE: 2020
